FAERS Safety Report 5475163-X (Version None)
Quarter: 2007Q4

REPORT INFORMATION
  Report Type: 
  Country: None (occurrence: None)
  Receive Date: 20071002
  Receipt Date: 20070921
  Transmission Date: 20080405
  Serious: Yes (Hospitalization)
  Sender: FDA-Public Use
  Company Number: US-ELI_LILLY_AND_COMPANY-US200709001376

PATIENT
  Age: 56 Year
  Sex: Female
  Weight: 43.2 kg

DRUGS (8)
  1. PREDNISONE [Concomitant]
  2. LEVAQUIN [Concomitant]
  3. SKELAXIN [Concomitant]
  4. ULTRAM [Concomitant]
  5. DUONEB [Concomitant]
  6. SEREVENT [Concomitant]
  7. CODEINE SUL TAB [Concomitant]
  8. FORTEO [Suspect]
     Indication: OSTEOPOROSIS
     Dosage: 20 UG, UNK
     Dates: start: 20070501

REACTIONS (3)
  - CHRONIC OBSTRUCTIVE PULMONARY DISEASE [None]
  - FEELING JITTERY [None]
  - MUSCLE SPASMS [None]
